FAERS Safety Report 26192879 (Version 1)
Quarter: 2025Q4

REPORT INFORMATION
  Report Type: Spontaneous
  Country: US (occurrence: US)
  Receive Date: 20251223
  Receipt Date: 20251223
  Transmission Date: 20260118
  Serious: Yes (Other)
  Sender: ELI LILLY AND COMPANY
  Company Number: US-ELI_LILLY_AND_COMPANY-US202512022526

PATIENT

DRUGS (1)
  1. MOUNJARO [Suspect]
     Active Substance: TIRZEPATIDE
     Indication: Product used for unknown indication
     Dosage: UNK UNK, UNKNOWN
     Route: 065

REACTIONS (7)
  - Blindness transient [Recovered/Resolved]
  - Cerebrovascular accident [Unknown]
  - Ketoacidosis [Unknown]
  - Seizure [Unknown]
  - Dehydration [Unknown]
  - Renal failure [Unknown]
  - Pancreatitis [Unknown]
